FAERS Safety Report 9153917 (Version 1)
Quarter: 2013Q1

REPORT INFORMATION
  Report Type: Spontaneous
  Country: US (occurrence: None)
  Receive Date: 20130207
  Receipt Date: 20130207
  Transmission Date: 20140127
  Serious: Yes (Hospitalization)
  Sender: FDA-Public Use
  Company Number: MIN-00902

PATIENT
  Age: 74 Year
  Sex: 0

DRUGS (1)
  1. MINOCYCLINE [Suspect]
     Dosage: 7 YEARS

REACTIONS (2)
  - Lower respiratory tract infection [None]
  - Skin discolouration [None]
